FAERS Safety Report 12290450 (Version 11)
Quarter: 2017Q4

REPORT INFORMATION
  Report Type: Report from Study
  Country: US (occurrence: US)
  Receive Date: 20160421
  Receipt Date: 20171108
  Transmission Date: 20180320
  Serious: Yes (Life-Threatening, Hospitalization, Disabling, Other)
  Sender: FDA-Public Use
  Company Number: PHEH2016US009358

PATIENT
  Age: 48 Year
  Sex: Female
  Weight: 91 kg

DRUGS (3)
  1. GILENYA [Suspect]
     Active Substance: FINGOLIMOD HYDROCHLORIDE
     Indication: RELAPSING-REMITTING MULTIPLE SCLEROSIS
     Dosage: 0.5 MG, QD
     Route: 048
     Dates: start: 20121119, end: 20151123
  2. ABILIFY [Concomitant]
     Active Substance: ARIPIPRAZOLE
     Indication: PRODUCT USED FOR UNKNOWN INDICATION
     Route: 065
  3. COPAXONE [Suspect]
     Active Substance: GLATIRAMER ACETATE
     Indication: PRODUCT USED FOR UNKNOWN INDICATION
     Route: 065

REACTIONS (16)
  - T-lymphocyte count decreased [Unknown]
  - Thrombocytopenia [Unknown]
  - Meningitis bacterial [Recovered/Resolved with Sequelae]
  - Leukocytosis [Unknown]
  - White blood cell count decreased [Unknown]
  - Brain injury [Unknown]
  - Apparent death [Unknown]
  - Lymphopenia [Unknown]
  - Mental disorder [Unknown]
  - Amnesia [Unknown]
  - Partial seizures with secondary generalisation [Unknown]
  - Rash [Unknown]
  - Cognitive disorder [Not Recovered/Not Resolved]
  - Loss of consciousness [Unknown]
  - Brain abscess [Recovered/Resolved with Sequelae]
  - Otitis media [Recovered/Resolved]

NARRATIVE: CASE EVENT DATE: 201511
